FAERS Safety Report 24254122 (Version 1)
Quarter: 2024Q3

REPORT INFORMATION
  Report Type: Spontaneous
  Country: ZA (occurrence: ZA)
  Receive Date: 20240827
  Receipt Date: 20240827
  Transmission Date: 20241016
  Serious: Yes (Hospitalization)
  Sender: BAYER
  Company Number: ZA-BAYER-2024A122245

PATIENT
  Age: 42 Year
  Sex: Female

DRUGS (4)
  1. DROSPIRENONE\ETHINYL ESTRADIOL [Suspect]
     Active Substance: DROSPIRENONE\ETHINYL ESTRADIOL
     Indication: Contraception
     Dosage: UNK
     Route: 048
  2. Serdep [Concomitant]
     Indication: Psychiatric care
     Route: 048
  3. ETIFOXINE [Concomitant]
     Active Substance: ETIFOXINE
     Indication: Anxiety
     Route: 048
  4. ALBUTEROL SULFATE [Concomitant]
     Active Substance: ALBUTEROL SULFATE
     Indication: Bronchospasm
     Route: 048

REACTIONS (1)
  - Road traffic accident [None]
